FAERS Safety Report 10779851 (Version 3)
Quarter: 2015Q2

REPORT INFORMATION
  Report Type: Spontaneous
  Country: US (occurrence: US)
  Receive Date: 20150210
  Receipt Date: 20150609
  Transmission Date: 20150821
  Serious: Yes (Other)
  Sender: FDA-Public Use
  Company Number: US-BAYER-2015-019703

PATIENT
  Age: 25 Year
  Sex: Female

DRUGS (2)
  1. REMERON [Concomitant]
     Active Substance: MIRTAZAPINE
     Indication: DEPRESSION
     Dosage: UNK
     Dates: start: 2008, end: 2012
  2. MIRENA [Suspect]
     Active Substance: LEVONORGESTREL
     Indication: CONTRACEPTION
     Dosage: 20 MCG/24HR, CONT
     Route: 015
     Dates: start: 20071203, end: 20100927

REACTIONS (14)
  - Device issue [None]
  - Abdominal discomfort [None]
  - Anxiety [None]
  - Uterine perforation [None]
  - Pelvic pain [None]
  - Genital haemorrhage [None]
  - Injury [None]
  - Asthenia [None]
  - Depression [None]
  - Abdominal pain [None]
  - Emotional distress [None]
  - Internal injury [None]
  - Depressed mood [None]
  - Fear [None]

NARRATIVE: CASE EVENT DATE: 200812
